FAERS Safety Report 5930640-X (Version None)
Quarter: 2008Q4

REPORT INFORMATION
  Report Type: 
  Country: None (occurrence: None)
  Receive Date: 20081027
  Receipt Date: 20080925
  Transmission Date: 20090506
  Serious: No
  Sender: FDA-Public Use
  Company Number: US-BAYER-200712538BWH

PATIENT
  Age: 44 Year
  Sex: Male
  Weight: 72 kg

DRUGS (5)
  1. NEXAVAR [Suspect]
     Indication: HEPATIC NEOPLASM MALIGNANT
     Dosage: TOTAL DAILY DOSE: 800 MG  UNIT DOSE: 200 MG
     Route: 048
     Dates: start: 20070727
  2. PERCOCET [Concomitant]
     Indication: PAIN
  3. NADOLOL [Concomitant]
     Indication: PROPHYLAXIS
  4. PREVACID [Concomitant]
     Indication: GASTROOESOPHAGEAL REFLUX DISEASE
     Dates: start: 20000101
  5. ULTRAM [Concomitant]
     Indication: PAIN
     Dosage: TOTAL DAILY DOSE: 100 MG

REACTIONS (6)
  - ABDOMINAL PAIN [None]
  - HEPATIC PAIN [None]
  - JOINT SWELLING [None]
  - OEDEMA PERIPHERAL [None]
  - RENAL PAIN [None]
  - SOMNOLENCE [None]
